FAERS Safety Report 25076264 (Version 2)
Quarter: 2025Q1

REPORT INFORMATION
  Report Type: Spontaneous
  Country: PL (occurrence: PL)
  Receive Date: 20250313
  Receipt Date: 20250317
  Transmission Date: 20250408
  Serious: No
  Sender: MYLAN
  Company Number: PL-SANDOZ-SDZ2025PL008433

PATIENT
  Age: 17 Year
  Sex: Female

DRUGS (2)
  1. IMATINIB [Suspect]
     Active Substance: IMATINIB
     Indication: Lymphocytic leukaemia
  2. DASATINIB [Suspect]
     Active Substance: DASATINIB
     Indication: Lymphocytic leukaemia

REACTIONS (4)
  - Drug ineffective [Unknown]
  - Drug resistance mutation [Unknown]
  - Gene mutation identification test positive [Unknown]
  - Off label use [Unknown]

NARRATIVE: CASE EVENT DATE: 20241201
